FAERS Safety Report 8331699-5 (Version None)
Quarter: 2012Q2

REPORT INFORMATION
  Report Type: 
  Country: None (occurrence: None)
  Receive Date: 20120502
  Receipt Date: 20120306
  Transmission Date: 20120825
  Serious: No
  Sender: FDA-Public Use
  Company Number: US-ASTRAZENECA-2012SE15788

PATIENT
  Sex: Female

DRUGS (3)
  1. ENTOCORT EC [Suspect]
     Route: 048
  2. ENTOCORT EC [Suspect]
     Indication: DIARRHOEA
     Route: 048
  3. ENTOCORT EC [Suspect]
     Route: 048

REACTIONS (5)
  - APHAGIA [None]
  - WEIGHT DECREASED [None]
  - OFF LABEL USE [None]
  - INFLAMMATORY BOWEL DISEASE [None]
  - INAPPROPRIATE SCHEDULE OF DRUG ADMINISTRATION [None]
